FAERS Safety Report 6711147-9 (Version None)
Quarter: 2010Q2

REPORT INFORMATION
  Report Type: 
  Country: None (occurrence: None)
  Receive Date: 20100504
  Receipt Date: 20100504
  Transmission Date: 20101027
  Serious: Yes (Other)
  Sender: FDA-Public Use
  Company Number: None

PATIENT
  Age: 57 Year
  Sex: Female
  Weight: 58.9676 kg

DRUGS (4)
  1. ZETIA [Suspect]
     Dosage: 10MG 1@DAY
     Dates: start: 20060101
  2. ZETIA [Suspect]
     Dosage: 10MG 1@DAY
     Dates: start: 20070101
  3. ZETIA [Suspect]
     Dosage: 10MG 1@DAY
     Dates: start: 20100201
  4. LIPITOR [Suspect]
     Dosage: 80-}40 1@DAY  (MANY YEARS)
     Dates: start: 20100201

REACTIONS (8)
  - ARTHRALGIA [None]
  - ASTHENIA [None]
  - DIZZINESS [None]
  - FATIGUE [None]
  - NAUSEA [None]
  - NECK PAIN [None]
  - PAIN [None]
  - PAIN IN EXTREMITY [None]
